FAERS Safety Report 18667315 (Version 1)
Quarter: 2020Q4

REPORT INFORMATION
  Report Type: Spontaneous
  Country: IT (occurrence: IT)
  Receive Date: 20201228
  Receipt Date: 20201228
  Transmission Date: 20210114
  Serious: Yes (Hospitalization)
  Sender: FDA-Public Use
  Company Number: IT-LUPIN PHARMACEUTICALS INC.-2020-10900

PATIENT
  Age: 43 Year
  Sex: Female

DRUGS (7)
  1. TRAMADOL. [Suspect]
     Active Substance: TRAMADOL
     Indication: MYOFASCIAL PAIN SYNDROME
     Dosage: 300 MILLIGRAM, QD
     Route: 065
  2. TAMOXIFEN [Concomitant]
     Active Substance: TAMOXIFEN
     Indication: PRODUCT USED FOR UNKNOWN INDICATION
     Dosage: UNK
     Route: 065
  3. PREGABALIN. [Suspect]
     Active Substance: PREGABALIN
     Indication: NEURALGIA
  4. TRAMADOL. [Suspect]
     Active Substance: TRAMADOL
     Indication: NEURALGIA
  5. PREGABALIN. [Suspect]
     Active Substance: PREGABALIN
     Indication: MYOFASCIAL PAIN SYNDROME
     Dosage: 300 MILLIGRAM, QD
     Route: 065
  6. DULOXETINE. [Suspect]
     Active Substance: DULOXETINE
     Indication: MYOFASCIAL PAIN SYNDROME
     Dosage: 60 MILLIGRAM
     Route: 065
  7. DULOXETINE. [Suspect]
     Active Substance: DULOXETINE
     Indication: NEURALGIA

REACTIONS (1)
  - Drug ineffective [Unknown]
